FAERS Safety Report 6734225-7 (Version None)
Quarter: 2010Q2

REPORT INFORMATION
  Report Type: 
  Country: None (occurrence: None)
  Receive Date: 20100520
  Receipt Date: 20100510
  Transmission Date: 20101027
  Serious: Yes (Other)
  Sender: FDA-Public Use
  Company Number: PHHY2010GB31470

PATIENT

DRUGS (2)
  1. PAMIDRONATE DISODIUM [Suspect]
     Dosage: 1 MG/KG, OVER THREE CONSECUTIVE DAYS, REPEATED 3 MONTHLY
  2. PREDNISOLONE [Concomitant]
     Dosage: 1 MG/KG/DAY

REACTIONS (6)
  - BONE MARROW OEDEMA [None]
  - FUNGAL SKIN INFECTION [None]
  - LIMB DEFORMITY [None]
  - OSTEOMYELITIS [None]
  - PAIN [None]
  - SYNOVITIS [None]
